FAERS Safety Report 5775408-2 (Version None)
Quarter: 2008Q2

REPORT INFORMATION
  Report Type: 
  Country: None (occurrence: None)
  Receive Date: 20080613
  Receipt Date: 20080603
  Transmission Date: 20081010
  Serious: Yes (Other)
  Sender: FDA-Public Use
  Company Number: 2008014408

PATIENT
  Age: 7 Year
  Sex: Female
  Weight: 18.1439 kg

DRUGS (1)
  1. PURELL ORIGINAL (ETHYL ALCOHOL) [Suspect]
     Dosage: OPHTHALMIC
     Route: 047
     Dates: start: 20080603, end: 20080603

REACTIONS (2)
  - ACCIDENTAL EXPOSURE [None]
  - EYE BURNS [None]
